FAERS Safety Report 6257459-7 (Version None)
Quarter: 2009Q3

REPORT INFORMATION
  Report Type: 
  Country: None (occurrence: None)
  Receive Date: 20090706
  Receipt Date: 20090626
  Transmission Date: 20100115
  Serious: Yes (Hospitalization)
  Sender: FDA-Public Use
  Company Number: JP-ABBOTT-09P-087-0579249-00

PATIENT
  Age: 76 Year
  Sex: Male
  Weight: 60.4 kg

DRUGS (4)
  1. LEUPLIN SR FOR INJECTION 11.25 MG [Suspect]
     Indication: PROSTATE CANCER STAGE III
     Route: 058
     Dates: start: 20060501
  2. LEUPLIN SR FOR INJECTION 11.25 MG [Suspect]
     Dates: start: 20060111, end: 20060405
  3. CASODEX [Concomitant]
     Indication: PROSTATE CANCER STAGE III
     Route: 048
  4. AVISHOT [Concomitant]
     Indication: BENIGN PROSTATIC HYPERPLASIA
     Route: 048

REACTIONS (1)
  - CHEST PAIN [None]
